FAERS Safety Report 19119292 (Version 4)
Quarter: 2021Q2

REPORT INFORMATION
  Report Type: Report from Study
  Country: US (occurrence: US)
  Receive Date: 20210411
  Receipt Date: 20210624
  Transmission Date: 20210717
  Serious: Yes (Hospitalization, Other)
  Sender: FDA-Public Use
  Company Number: NVSC2021US074086

PATIENT
  Sex: Male

DRUGS (3)
  1. XARELTO [Concomitant]
     Active Substance: RIVAROXABAN
     Indication: PRODUCT USED FOR UNKNOWN INDICATION
     Dosage: UNK UNK, UNKNOWN
     Route: 065
  2. ENTRESTO [Suspect]
     Active Substance: SACUBITRIL\VALSARTAN
     Dosage: 50 (24/26) MG, UNKNOWN
     Route: 065
  3. ENTRESTO [Suspect]
     Active Substance: SACUBITRIL\VALSARTAN
     Indication: PRODUCT USED FOR UNKNOWN INDICATION
     Dosage: UNK UNK, UNKNOWN (HIGH DOSE)
     Route: 065

REACTIONS (9)
  - Hypotension [Unknown]
  - Fluid retention [Unknown]
  - Hypoacusis [Unknown]
  - Dyspepsia [Unknown]
  - Atrial fibrillation [Unknown]
  - Amnesia [Unknown]
  - Diarrhoea [Unknown]
  - Osteoporosis [Unknown]
  - Gait disturbance [Unknown]
